FAERS Safety Report 9207195 (Version 1)
Quarter: 2013Q1

REPORT INFORMATION
  Report Type: Spontaneous
  Country: US (occurrence: None)
  Receive Date: 20120718
  Receipt Date: 20120718
  Transmission Date: 20140127
  Serious: Yes (Other)
  Sender: FDA-Public Use
  Company Number: 163-CCAZA-11103467

PATIENT
  Age: 76 Year
  Sex: Male

DRUGS (6)
  1. VIDAZA [Suspect]
     Indication: MYELODYSPLASTIC SYNDROME
     Dosage: 75 MG/M2
     Route: 058
  2. LOSARTAN (LOSARTAN )UNKNOWN [Concomitant]
  3. ESOMEPRAZOLE (ESOMEPRAZOLE)UNKNOWN [Concomitant]
  4. ASPIRIN (ACETYLSALICYLIC ACID) UNKNOWN [Concomitant]
  5. FOLIC ACID (FOLIC ACID )UNKNWOWN [Concomitant]
  6. MULTIVITAMINS (MULTIVITAMINS)UNKNOWN [Concomitant]

REACTIONS (1)
  - Eosinophilic pneumonia [None]
